FAERS Safety Report 8153690-4 (Version None)
Quarter: 2012Q1

REPORT INFORMATION
  Report Type: 
  Country: None (occurrence: None)
  Receive Date: 20120221
  Receipt Date: 20120214
  Transmission Date: 20120608
  Serious: Yes (Death)
  Sender: FDA-Public Use
  Company Number: US-TEVA-315205USA

PATIENT
  Age: 49 Year
  Sex: Male

DRUGS (5)
  1. VICODIN [Suspect]
  2. MIRTAZAPINE [Suspect]
  3. OTHER UNSPECIFIED MEDICATION [Suspect]
  4. COPAXONE [Suspect]
     Indication: MULTIPLE SCLEROSIS
     Dosage: 20 MILLIGRAM;
     Route: 058
     Dates: end: 20110409
  5. BACLOFEN [Suspect]
     Dosage: 180 PILLS

REACTIONS (2)
  - MULTIPLE DRUG OVERDOSE INTENTIONAL [None]
  - TOXICITY TO VARIOUS AGENTS [None]
